FAERS Safety Report 19824119 (Version 2)
Quarter: 2021Q3

REPORT INFORMATION
  Report Type: Report from Study
  Country: BR (occurrence: BR)
  Receive Date: 20210913
  Receipt Date: 20210917
  Transmission Date: 20211014
  Serious: Yes (Other)
  Sender: FDA-Public Use
  Company Number: BR-UCBSA-2021042588

PATIENT
  Age: 88 Year
  Sex: Female
  Weight: 56 kg

DRUGS (3)
  1. AZITHROMYCIN ANHYDROUS. [Concomitant]
     Active Substance: AZITHROMYCIN ANHYDROUS
     Indication: SUSPECTED COVID-19
     Dosage: UNK
     Route: 048
     Dates: start: 202105
  2. CERTOLIZUMAB PEGOL [Suspect]
     Active Substance: CERTOLIZUMAB PEGOL
     Indication: RHEUMATOID ARTHRITIS
     Dosage: 200 MILLIGRAM, EV 15 DAYS
     Route: 058
     Dates: start: 20190730, end: 20210830
  3. PREDNISONE. [Concomitant]
     Active Substance: PREDNISONE
     Indication: FATIGUE
     Dosage: 1 DOSAGE FORM, ONCE DAILY (QD) FOR 5DAYS
     Route: 048
     Dates: start: 202106

REACTIONS (9)
  - Productive cough [Recovering/Resolving]
  - Cough [Recovering/Resolving]
  - SARS-CoV-2 test negative [Unknown]
  - Influenza [Recovering/Resolving]
  - Fatigue [Recovering/Resolving]
  - Suspected COVID-19 [Recovering/Resolving]
  - Bronchitis [Recovering/Resolving]
  - Decreased appetite [Recovering/Resolving]
  - Pneumonia [Recovering/Resolving]

NARRATIVE: CASE EVENT DATE: 202105
